FAERS Safety Report 5411048-2 (Version None)
Quarter: 2007Q3

REPORT INFORMATION
  Report Type: 
  Country: None (occurrence: None)
  Receive Date: 20070713
  Receipt Date: 20070507
  Transmission Date: 20080115
  Serious: No
  Sender: FDA-Public Use
  Company Number: 2007SP001698

PATIENT
  Age: 46 Year
  Sex: Male
  Weight: 75.7507 kg

DRUGS (7)
  1. LUNESTA [Suspect]
     Indication: INSOMNIA
     Dosage: 3 MG; PRN; ORAL; 1.5 MG; PRN; ORAL
     Route: 048
     Dates: start: 20060901
  2. IBUPROFEN TABLETS [Concomitant]
  3. PROZAC [Concomitant]
  4. ANTIDEPRESSANTS [Concomitant]
  5. GLUCOSAMINE [Concomitant]
  6. FLEXERIL [Concomitant]
  7. LORTAB [Concomitant]

REACTIONS (2)
  - INSOMNIA [None]
  - THERAPEUTIC RESPONSE UNEXPECTED [None]
